FAERS Safety Report 19878278 (Version 1)
Quarter: 2021Q3

REPORT INFORMATION
  Report Type: Spontaneous
  Country: US (occurrence: US)
  Receive Date: 20210922
  Receipt Date: 20210922
  Transmission Date: 20211014
  Serious: No
  Sender: FDA-Public Use
  Company Number: None

PATIENT

DRUGS (2)
  1. BISACODYL. [Suspect]
     Active Substance: BISACODYL
  2. TYLENOL [Suspect]
     Active Substance: ACETAMINOPHEN

REACTIONS (1)
  - Product label on wrong product [None]
